FAERS Safety Report 12406737 (Version 1)
Quarter: 2016Q2

REPORT INFORMATION
  Report Type: Spontaneous
  Country: SE (occurrence: SE)
  Receive Date: 20160526
  Receipt Date: 20160526
  Transmission Date: 20160815
  Serious: Yes (Hospitalization, Disabling, Other)
  Sender: FDA-Public Use
  Company Number: SE-PFIZER INC-2016269186

PATIENT
  Age: 65 Year
  Sex: Male

DRUGS (7)
  1. ENALAPRIL [Concomitant]
     Active Substance: ENALAPRIL
     Dosage: UNK
  2. WARAN [Concomitant]
     Active Substance: WARFARIN SODIUM
     Dosage: UNK
  3. LANTUS [Concomitant]
     Active Substance: INSULIN GLARGINE
     Dosage: UNK
  4. CORDARONE [Suspect]
     Active Substance: AMIODARONE HYDROCHLORIDE
     Indication: ATRIAL FIBRILLATION
     Dosage: 200 MG, DAILY
     Route: 048
     Dates: start: 20150323, end: 20150812
  5. BISOPROLOL [Concomitant]
     Active Substance: BISOPROLOL
     Dosage: UNK
  6. SIMVASTATIN. [Concomitant]
     Active Substance: SIMVASTATIN
     Dosage: UNK
  7. NOVORAPID [Concomitant]
     Active Substance: INSULIN ASPART
     Dosage: UNK

REACTIONS (4)
  - Visual field defect [Not Recovered/Not Resolved]
  - Optic atrophy [Unknown]
  - Papilloedema [Unknown]
  - Visual acuity reduced [Unknown]

NARRATIVE: CASE EVENT DATE: 201508
